FAERS Safety Report 22021337 (Version 1)
Quarter: 2023Q1

REPORT INFORMATION
  Report Type: Spontaneous
  Country: US (occurrence: None)
  Receive Date: 20230218
  Receipt Date: 20230218
  Transmission Date: 20230417
  Serious: Yes (Life-Threatening, Hospitalization)
  Sender: FDA-Public Use
  Company Number: None

PATIENT
  Age: 40 Year
  Sex: Female

DRUGS (4)
  1. MIFEPRISTONE [Suspect]
     Active Substance: MIFEPRISTONE
     Indication: Abortion induced
     Dates: start: 20230215, end: 20230217
  2. MISOPROSTOL [Suspect]
     Active Substance: MISOPROSTOL
     Indication: Abortion induced
     Dates: start: 20230217
  3. MIFEPRISTONE [Concomitant]
     Active Substance: MIFEPRISTONE
     Dates: start: 20230215
  4. MISOPROSTOL [Concomitant]
     Active Substance: MISOPROSTOL
     Dates: start: 20230217

REACTIONS (6)
  - Haemorrhage [None]
  - Anaemia [None]
  - Maternal exposure during pregnancy [None]
  - Foetal exposure during pregnancy [None]
  - Drug monitoring procedure not performed [None]
  - Product prescribing error [None]

NARRATIVE: CASE EVENT DATE: 20230218
